FAERS Safety Report 17041734 (Version 1)
Quarter: 2019Q4

REPORT INFORMATION
  Report Type: Spontaneous
  Country: US (occurrence: US)
  Receive Date: 20191017
  Receipt Date: 20191017
  Transmission Date: 20200122
  Serious: No
  Sender: FDA-Public Use
  Company Number: None

PATIENT
  Age: 16 Year
  Sex: Female

DRUGS (1)
  1. STELARA [Suspect]
     Active Substance: USTEKINUMAB
     Dosage: ?          OTHER FREQUENCY:OTHER;?
     Route: 058
     Dates: start: 201901

REACTIONS (5)
  - Injection site erythema [None]
  - Eyelids pruritus [None]
  - Skin disorder [None]
  - Injection site induration [None]
  - Pruritus [None]

NARRATIVE: CASE EVENT DATE: 20191017
